FAERS Safety Report 8620702-0 (Version None)
Quarter: 2012Q3

REPORT INFORMATION
  Report Type: 
  Country: None (occurrence: None)
  Receive Date: 20120816
  Receipt Date: 20120816
  Transmission Date: 20120928
  Serious: Yes (Other)
  Sender: FDA-Public Use
  Company Number: None

PATIENT
  Age: 61 Year
  Sex: Male
  Weight: 120.5 kg

DRUGS (1)
  1. SIMVASTATIN [Suspect]
     Indication: HYPERLIPIDAEMIA
     Dosage: 20 MG, AT BEDTIME, PO
     Route: 048
     Dates: start: 20110124, end: 20110425

REACTIONS (2)
  - DRUG-INDUCED LIVER INJURY [None]
  - HEPATOTOXICITY [None]
